FAERS Safety Report 5017554-7 (Version None)
Quarter: 2006Q2

REPORT INFORMATION
  Report Type: 
  Country: None (occurrence: None)
  Receive Date: 20060601
  Receipt Date: 20060601
  Transmission Date: 20061013
  Serious: Yes (Other)
  Sender: FDA-Public Use
  Company Number: None

PATIENT
  Age: 48 Year
  Sex: Male
  Weight: 92.7 kg

DRUGS (9)
  1. LORAZEPAM [Suspect]
     Indication: DRUG WITHDRAWAL SYNDROME
     Dosage: VARIABLE - UP TO 30 MG/HR  CONTINUOUS IV DRIP  IV DRIP
     Route: 041
     Dates: start: 20060312, end: 20060314
  2. MULTI-VITAMIN [Concomitant]
  3. FOLIC ACID [Concomitant]
  4. THIAMINE [Concomitant]
  5. FLOVENT [Concomitant]
  6. MAGNESIUM [Concomitant]
  7. LEVAQUIN [Concomitant]
  8. PREDNISONE [Concomitant]
  9. INSULIN [Concomitant]

REACTIONS (3)
  - AGGRESSION [None]
  - DRUG TOXICITY [None]
  - HYPEROSMOLAR STATE [None]
